FAERS Safety Report 8047991 (Version 2)
Quarter: 2013Q1

REPORT INFORMATION
  Report Type: Spontaneous
  Country: BR (occurrence: BR)
  Receive Date: 20110721
  Receipt Date: 20130114
  Transmission Date: 20140127
  Serious: Yes (Other)
  Sender: FDA-Public Use
  Company Number: PHHY2011BR61160

PATIENT
  Age: 65 Year
  Sex: Female

DRUGS (1)
  1. DIOVAN HCT [Suspect]
     Indication: HYPERTENSION
     Dosage: 1 DF A DAY
     Route: 048

REACTIONS (3)
  - Asthma [Recovering/Resolving]
  - Dyspnoea [Unknown]
  - Influenza [Recovered/Resolved]
